FAERS Safety Report 9763711 (Version 1)
Quarter: 2013Q4

REPORT INFORMATION
  Report Type: Spontaneous
  Country: US (occurrence: US)
  Receive Date: 20131216
  Receipt Date: 20131216
  Transmission Date: 20140711
  Serious: No
  Sender: FDA-Public Use
  Company Number: US-BIOGENIDEC-2013BI113882

PATIENT
  Age: 53 Year
  Sex: Female
  Weight: 68 kg

DRUGS (21)
  1. TECFIDERA [Suspect]
     Indication: PRODUCT USED FOR UNKNOWN INDICATION
     Route: 048
  2. TECFIDERA [Suspect]
     Indication: PRODUCT USED FOR UNKNOWN INDICATION
     Route: 048
  3. VESICARE [Concomitant]
  4. NEXIUM [Concomitant]
  5. LIBRAX [Concomitant]
  6. BACLOFEN [Concomitant]
  7. TRILEPTAL [Concomitant]
  8. COLACE [Concomitant]
  9. ACYCLOVIR [Concomitant]
  10. PHENERGAN [Concomitant]
  11. DILAUDID [Concomitant]
  12. PRIALT [Concomitant]
  13. SYNTHROID [Concomitant]
  14. NORCO [Concomitant]
  15. VITAMIN D3 [Concomitant]
  16. ZANAFLEX [Concomitant]
  17. ASPIRIN [Concomitant]
  18. ATORVASTATIN [Concomitant]
  19. CENTRUM SILVER [Concomitant]
  20. SENNA LAX [Concomitant]
  21. TRIAM/HCTZ [Concomitant]

REACTIONS (6)
  - Pyrexia [Unknown]
  - Constipation [Unknown]
  - Abdominal pain upper [Unknown]
  - Nausea [Unknown]
  - Vomiting [Unknown]
  - Abdominal pain [Not Recovered/Not Resolved]
